FAERS Safety Report 18217553 (Version 2)
Quarter: 2020Q3

REPORT INFORMATION
  Report Type: Spontaneous
  Country: DE (occurrence: DE)
  Receive Date: 20200901
  Receipt Date: 20200930
  Transmission Date: 20201103
  Serious: No
  Sender: FDA-Public Use
  Company Number: DE-GW PHARMA-202008DEGW02919

PATIENT

DRUGS (3)
  1. CLOBAZAM. [Suspect]
     Active Substance: CLOBAZAM
     Indication: LENNOX-GASTAUT SYNDROME
     Dosage: 0.04MG/KG BW/D, 1 MILLIGRAM, QD
     Route: 065
  2. VALPROATE [Concomitant]
     Active Substance: VALPROIC ACID
     Indication: EPILEPSY
     Dosage: 26 MG/KG BD/W, 300 MILLIGRAM, BID
     Route: 065
  3. EPIDIOLEX [Suspect]
     Active Substance: CANNABIDIOL
     Indication: LENNOX-GASTAUT SYNDROME
     Dosage: 2.2 MG/KG BW/D, 25 MILLIGRAM, BID (STARTING DOSE)
     Route: 048

REACTIONS (3)
  - Seizure [Unknown]
  - Insomnia [Unknown]
  - Agitation [Unknown]
